FAERS Safety Report 5756836-8 (Version None)
Quarter: 2008Q2

REPORT INFORMATION
  Report Type: 
  Country: None (occurrence: None)
  Receive Date: 20080529
  Receipt Date: 20080513
  Transmission Date: 20081010
  Serious: Yes (Other)
  Sender: FDA-Public Use
  Company Number: 430002L08USA

PATIENT
  Sex: Female

DRUGS (3)
  1. MITOXANTRONE HYDROCHLORIDE (MITOXANTRONE HYDROCHLORIDE) [Suspect]
     Indication: MULTIPLE SCLEROSIS
     Dosage: 18 MG, 1 IN 2 MONTHS
     Dates: start: 20010901, end: 20030202
  2. AVONEX [Suspect]
     Indication: MULTIPLE SCLEROSIS
     Dosage: 30 MCG, 1 IN 1 WEEKS
     Dates: start: 19960101, end: 19980101
  3. AVONEX [Suspect]
     Indication: MULTIPLE SCLEROSIS
     Dosage: 30 MCG, 1 IN 1 WEEKS
     Dates: start: 19980101

REACTIONS (7)
  - ACUTE MYELOID LEUKAEMIA [None]
  - BLAST CELL CRISIS [None]
  - BLOOD ALKALINE PHOSPHATASE INCREASED [None]
  - CHRONIC MYELOID LEUKAEMIA [None]
  - MARROW HYPERPLASIA [None]
  - THROMBOCYTHAEMIA [None]
  - URINARY TRACT INFECTION [None]
